FAERS Safety Report 5448335-8 (Version None)
Quarter: 2007Q3

REPORT INFORMATION
  Report Type: 
  Country: None (occurrence: None)
  Receive Date: 20070906
  Receipt Date: 20070806
  Transmission Date: 20080115
  Serious: Yes (Other)
  Sender: FDA-Public Use
  Company Number: 001#1#2007-00518

PATIENT
  Age: 67 Year
  Sex: Male

DRUGS (2)
  1. NEUPRO-8MG/24H (ROTIGOTINE) [Suspect]
     Indication: PARKINSON'S DISEASE
     Dosage: 8 MG/24H (8 MG/24H 1 IN 1 DAY(S))
     Route: 062
  2. CLINDAMYCIN (CLINDAMYCIN) [Suspect]
     Indication: SINUSITIS
     Dates: start: 20070710, end: 20070712

REACTIONS (7)
  - APPLICATION SITE ERYTHEMA [None]
  - CONDITION AGGRAVATED [None]
  - DRUG INEFFECTIVE [None]
  - DRUG INTERACTION [None]
  - MUSCLE RIGIDITY [None]
  - PARKINSON'S DISEASE [None]
  - SECRETION DISCHARGE [None]
